FAERS Safety Report 10209435 (Version 2)
Quarter: 2014Q2

REPORT INFORMATION
  Report Type: Spontaneous
  Country: BR (occurrence: BR)
  Receive Date: 20140601
  Receipt Date: 20140629
  Transmission Date: 20141212
  Serious: Yes (Other)
  Sender: FDA-Public Use
  Company Number: PHHY2014BR064336

PATIENT
  Sex: Female
  Weight: 50 kg

DRUGS (1)
  1. FORASEQ [Suspect]
     Indication: ASTHMA
     Dosage: UNK UKN, UNK (400/12 MCG) WHEN HER ASTHMA AFFECTED HER
     Route: 055

REACTIONS (5)
  - Diabetes mellitus [Not Recovered/Not Resolved]
  - Carpal tunnel syndrome [Not Recovered/Not Resolved]
  - Helicobacter gastritis [Recovering/Resolving]
  - Blood cholesterol increased [Not Recovered/Not Resolved]
  - Weight decreased [Recovering/Resolving]
